FAERS Safety Report 14545021 (Version 1)
Quarter: 2018Q1

REPORT INFORMATION
  Report Type: Spontaneous
  Country: US (occurrence: US)
  Receive Date: 20180216
  Receipt Date: 20180216
  Transmission Date: 20180509
  Serious: Yes (Other)
  Sender: FDA-Public Use
  Company Number: None

PATIENT
  Age: 49 Year
  Sex: Female
  Weight: 69.75 kg

DRUGS (1)
  1. TAMIFLU [Suspect]
     Active Substance: OSELTAMIVIR PHOSPHATE
     Indication: INFLUENZA
     Dosage: ?          QUANTITY:1 TABLET(S);?
     Route: 048
     Dates: start: 20180126, end: 20180131

REACTIONS (11)
  - Abdominal pain [None]
  - Dizziness [None]
  - Muscle spasms [None]
  - Heart rate increased [None]
  - Insomnia [None]
  - Chest pain [None]
  - Confusional state [None]
  - Headache [None]
  - Influenza [None]
  - Stress [None]
  - Vision blurred [None]

NARRATIVE: CASE EVENT DATE: 20180216
